FAERS Safety Report 4588734-X (Version None)
Quarter: 2005Q1

REPORT INFORMATION
  Report Type: 
  Country: None (occurrence: None)
  Receive Date: 20050216
  Receipt Date: 20050201
  Transmission Date: 20050727
  Serious: Yes (Hospitalization, Other)
  Sender: FDA-Public Use
  Company Number: USA041285135

PATIENT
  Age: 53 Year
  Sex: Female
  Weight: 113 kg

DRUGS (10)
  1. CYMBALTA [Suspect]
     Indication: SCHIZOAFFECTIVE DISORDER
     Dosage: 60 MG DAY
  2. TOPAMAX [Concomitant]
  3. LEXAPRO [Concomitant]
  4. ZETIA [Concomitant]
  5. ZOCOR (SIMVASTATIN RATIOPHARM) [Concomitant]
  6. ADVAIR DISKUS 100/50 [Concomitant]
  7. ASPIRIN [Concomitant]
  8. SINGULAIR (MONTELUKAST) [Concomitant]
  9. ABILIFY [Concomitant]
  10. AZMACORT [Concomitant]

REACTIONS (3)
  - BLOOD SODIUM DECREASED [None]
  - CONVERSION DISORDER [None]
  - GRAND MAL CONVULSION [None]
